FAERS Safety Report 23626968 (Version 1)
Quarter: 2024Q1

REPORT INFORMATION
  Report Type: Report from Study
  Country: US (occurrence: US)
  Receive Date: 20240313
  Receipt Date: 20240313
  Transmission Date: 20240409
  Serious: No
  Sender: FDA-Public Use
  Company Number: US-SPRINGWORKS THERAPEUTICS-SW-000829

PATIENT
  Age: 40 Year
  Sex: Female

DRUGS (2)
  1. NIROGACESTAT [Suspect]
     Active Substance: NIROGACESTAT
     Indication: Desmoid tumour
     Dosage: 150 MILLIGRAM, BID
     Route: 048
     Dates: start: 20200623
  2. NIROGACESTAT [Suspect]
     Active Substance: NIROGACESTAT
     Dosage: 100 MILLIGRAM, BID
     Route: 048

REACTIONS (4)
  - Graves^ disease [Not Recovered/Not Resolved]
  - Diarrhoea [Not Recovered/Not Resolved]
  - Rash [Recovered/Resolved]
  - Ovarian failure [Unknown]

NARRATIVE: CASE EVENT DATE: 20190201
